FAERS Safety Report 14833605 (Version 1)
Quarter: 2018Q2

REPORT INFORMATION
  Report Type: Spontaneous
  Country: US (occurrence: US)
  Receive Date: 20180501
  Receipt Date: 20180501
  Transmission Date: 20180711
  Serious: Yes (Hospitalization, Other)
  Sender: FDA-Public Use
  Company Number: US-GLAXOSMITHKLINE-US2018075882

PATIENT
  Sex: Male

DRUGS (3)
  1. FLOVENT DISKUS [Suspect]
     Active Substance: FLUTICASONE PROPIONATE
     Indication: ASTHMA
     Dosage: UNK
     Route: 055
     Dates: start: 2012
  2. ATENOLOL. [Concomitant]
     Active Substance: ATENOLOL
  3. FLOVENT [Suspect]
     Active Substance: FLUTICASONE PROPIONATE
     Indication: PRODUCT USED FOR UNKNOWN INDICATION
     Dosage: UNK
     Dates: start: 2004

REACTIONS (3)
  - Coronary artery bypass [Unknown]
  - Drug ineffective [Recovered/Resolved]
  - Dyspnoea [Recovered/Resolved]
